FAERS Safety Report 16318313 (Version 1)
Quarter: 2019Q2

REPORT INFORMATION
  Report Type: Spontaneous
  Country: IE (occurrence: IE)
  Receive Date: 20190516
  Receipt Date: 20190516
  Transmission Date: 20190711
  Serious: Yes (Other)
  Sender: FDA-Public Use
  Company Number: IE-AUROBINDO-AUR-APL-2019-025978

PATIENT

DRUGS (12)
  1. CALCICHEW-D3 FORTE [Concomitant]
     Active Substance: CALCIUM\CHOLECALCIFEROL
     Indication: PRODUCT USED FOR UNKNOWN INDICATION
     Dosage: 1 TABLET
     Route: 065
  2. METFORMIN [Concomitant]
     Active Substance: METFORMIN HYDROCHLORIDE
     Indication: DIABETES MELLITUS
     Dosage: 1000 MILLIGRAM
     Route: 065
  3. ATORVASTATIN [Concomitant]
     Active Substance: ATORVASTATIN
     Indication: BLOOD CHOLESTEROL
     Dosage: 20 MILLIGRAM
     Route: 065
  4. FLEBOGAMMA [Suspect]
     Active Substance: HUMAN IMMUNOGLOBULIN G
     Indication: STIFF PERSON SYNDROME
     Dosage: UNK
     Route: 065
  5. FOSAMAX [Concomitant]
     Active Substance: ALENDRONATE SODIUM
     Indication: PRODUCT USED FOR UNKNOWN INDICATION
     Dosage: 70 MILLIGRAM
     Route: 065
  6. GABAPENTIN. [Suspect]
     Active Substance: GABAPENTIN
     Indication: ANALGESIC THERAPY
     Dosage: 400 MILLIGRAM
     Route: 065
  7. FLEBOGAMMA [Suspect]
     Active Substance: HUMAN IMMUNOGLOBULIN G
     Dosage: UNK
     Route: 042
     Dates: start: 201708
  8. PREDNISOLONE. [Concomitant]
     Active Substance: PREDNISOLONE
     Indication: PRODUCT USED FOR UNKNOWN INDICATION
     Dosage: 5 MILLIGRAM
     Route: 065
  9. NOVORAPID [Concomitant]
     Active Substance: INSULIN ASPART
     Indication: BLOOD INSULIN
     Dosage: UNK
     Route: 065
  10. FLEBOGAMMA [Suspect]
     Active Substance: HUMAN IMMUNOGLOBULIN G
     Indication: DYSTONIA
     Dosage: 100MG/ML (BOTTLE 1 AND BOTTLE 2)
     Route: 042
     Dates: start: 20180523
  11. MIRAPEXIN [Concomitant]
     Active Substance: PRAMIPEXOLE
     Indication: PRODUCT USED FOR UNKNOWN INDICATION
     Dosage: 0.89 MILLIGRAM
     Route: 065
  12. LANSOPRAZOLE. [Concomitant]
     Active Substance: LANSOPRAZOLE
     Indication: PRODUCT USED FOR UNKNOWN INDICATION
     Dosage: 15 MILLIGRAM
     Route: 065

REACTIONS (4)
  - Pruritus [Recovered/Resolved]
  - Headache [Recovered/Resolved]
  - Chills [Recovered/Resolved]
  - Asthenia [Recovered/Resolved]

NARRATIVE: CASE EVENT DATE: 20180523
